FAERS Safety Report 5581941-9 (Version None)
Quarter: 2008Q1

REPORT INFORMATION
  Report Type: 
  Country: None (occurrence: None)
  Receive Date: 20080104
  Receipt Date: 20071228
  Transmission Date: 20080703
  Serious: Yes (Other)
  Sender: FDA-Public Use
  Company Number: B0487084A

PATIENT
  Age: 81 Year
  Sex: Male
  Weight: 53 kg

DRUGS (9)
  1. ARIXTRA [Suspect]
     Indication: THROMBOSIS PROPHYLAXIS
     Dosage: 2.5MG PER DAY
     Route: 058
     Dates: start: 20070907, end: 20070911
  2. CEFAMEZIN [Concomitant]
     Indication: INFECTION PROPHYLAXIS
     Dosage: 2G UNKNOWN
     Route: 042
     Dates: start: 20070908
  3. TRICHLORMETHIAZIDE [Concomitant]
     Indication: HYPERTENSION
     Dosage: 1MG UNKNOWN
     Route: 048
     Dates: start: 20070825
  4. ARTIST [Concomitant]
     Indication: HYPERTENSION
     Dosage: 10MG UNKNOWN
     Route: 048
     Dates: start: 20070825
  5. NORVASC [Concomitant]
     Indication: HYPERTENSION
     Dosage: 10MG UNKNOWN
     Route: 048
     Dates: start: 20070824
  6. NORVASC [Concomitant]
     Dates: start: 20070825
  7. OLMETEC [Concomitant]
     Indication: HYPERTENSION
     Route: 048
  8. AMARYL [Concomitant]
     Indication: DIABETES MELLITUS
     Route: 048
     Dates: end: 20070821
  9. HUMULIN N [Concomitant]
     Indication: DIABETES MELLITUS
     Route: 058
     Dates: start: 20070821

REACTIONS (4)
  - BONE MARROW FAILURE [None]
  - INFECTION [None]
  - POST PROCEDURAL HAEMORRHAGE [None]
  - WHITE BLOOD CELL COUNT DECREASED [None]
